FAERS Safety Report 8145719-4 (Version None)
Quarter: 2012Q1

REPORT INFORMATION
  Report Type: 
  Country: None (occurrence: None)
  Receive Date: 20120217
  Receipt Date: 20120203
  Transmission Date: 20120608
  Serious: Yes (Other)
  Sender: FDA-Public Use
  Company Number: US-PERRIGO-12US001231

PATIENT

DRUGS (1)
  1. TUSSIN DM MAX 799 [Suspect]
     Indication: PRODUCT USED FOR UNKNOWN INDICATION
     Dosage: 10 ML, ONCE
     Route: 048
     Dates: start: 20120203, end: 20120203

REACTIONS (5)
  - ABDOMINAL PAIN UPPER [None]
  - CHEST PAIN [None]
  - COLD SWEAT [None]
  - BLINDNESS TRANSIENT [None]
  - DYSSTASIA [None]
